FAERS Safety Report 11054805 (Version 2)
Quarter: 2015Q2

REPORT INFORMATION
  Report Type: Spontaneous
  Country: US (occurrence: US)
  Receive Date: 20150422
  Receipt Date: 20150428
  Transmission Date: 20150821
  Serious: Yes (Hospitalization, Other)
  Sender: FDA-Public Use
  Company Number: PR-ELI_LILLY_AND_COMPANY-US201504005988

PATIENT
  Age: 80 Year
  Sex: Female

DRUGS (3)
  1. HUMULIN N [Suspect]
     Active Substance: INSULIN HUMAN
     Indication: TYPE 2 DIABETES MELLITUS
     Dosage: 40 U, QD
     Route: 065
     Dates: start: 2005
  2. HUMULIN N [Suspect]
     Active Substance: INSULIN HUMAN
     Dosage: 55 U, BID
     Route: 065
     Dates: start: 2013
  3. HUMALOG [Suspect]
     Active Substance: INSULIN LISPRO
     Indication: TYPE 2 DIABETES MELLITUS
     Dosage: 20 U, BID
     Route: 065
     Dates: start: 2013

REACTIONS (21)
  - Hypoglycaemic unconsciousness [Recovering/Resolving]
  - Somnolence [Not Recovered/Not Resolved]
  - Renal impairment [Not Recovered/Not Resolved]
  - Dysentery [Unknown]
  - Irritability [Not Recovered/Not Resolved]
  - Gait disturbance [Not Recovered/Not Resolved]
  - Cardiac disorder [Unknown]
  - Memory impairment [Not Recovered/Not Resolved]
  - Disorientation [Unknown]
  - Incorrect dose administered [Recovered/Resolved]
  - Lactose intolerance [Unknown]
  - Blood glucose increased [Unknown]
  - Arthralgia [Not Recovered/Not Resolved]
  - Osteopenia [Unknown]
  - Hypertension [Unknown]
  - Confusional state [Not Recovered/Not Resolved]
  - Overweight [Unknown]
  - Screaming [Unknown]
  - Hepatic function abnormal [Unknown]
  - Fatigue [Not Recovered/Not Resolved]
  - Diarrhoea [Unknown]

NARRATIVE: CASE EVENT DATE: 201409
